FAERS Safety Report 24937199 (Version 1)
Quarter: 2025Q1

REPORT INFORMATION
  Report Type: Spontaneous
  Country: ES (occurrence: ES)
  Receive Date: 20250206
  Receipt Date: 20250206
  Transmission Date: 20250409
  Serious: Yes (Hospitalization)
  Sender: MYLAN
  Company Number: None

PATIENT
  Age: 80 Year
  Sex: Female

DRUGS (4)
  1. TRAMADOL [Interacting]
     Active Substance: TRAMADOL
     Indication: Pain
     Dosage: 50 MILLIGRAM, Q8H
     Route: 048
     Dates: start: 20241021, end: 20241116
  2. GABAPENTIN [Interacting]
     Active Substance: GABAPENTIN
     Indication: Neuromuscular pain
     Dosage: 300 MILLIGRAM, Q8H
     Route: 048
     Dates: start: 20241025, end: 20241127
  3. VENLAFAXINE [Interacting]
     Active Substance: VENLAFAXINE HYDROCHLORIDE
     Indication: Depression
     Dosage: 150 MILLIGRAM, QD
     Route: 048
     Dates: start: 20120615
  4. TRYPTIZOL [Interacting]
     Active Substance: AMITRIPTYLINE HYDROCHLORIDE
     Indication: Neuromuscular pain
     Dosage: 10 MILLIGRAM, QD
     Route: 048
     Dates: start: 20241028, end: 20241114

REACTIONS (2)
  - Myoclonus [Recovered/Resolved]
  - Drug interaction [Unknown]

NARRATIVE: CASE EVENT DATE: 20241103
